FAERS Safety Report 25196352 (Version 1)
Quarter: 2025Q2

REPORT INFORMATION
  Report Type: Spontaneous
  Country: US (occurrence: US)
  Receive Date: 20250415
  Receipt Date: 20250415
  Transmission Date: 20250717
  Serious: Yes (Other)
  Sender: MERCK SHARP AND DOHME
  Company Number: US-009507513-2273982

PATIENT
  Sex: Female
  Weight: 54.885 kg

DRUGS (30)
  1. SOTATERCEPT [Suspect]
     Active Substance: SOTATERCEPT
  2. SOTATERCEPT [Suspect]
     Active Substance: SOTATERCEPT
  3. SOTATERCEPT [Suspect]
     Active Substance: SOTATERCEPT
  4. SOTATERCEPT [Suspect]
     Active Substance: SOTATERCEPT
  5. REMODULIN [Suspect]
     Active Substance: TREPROSTINIL
     Indication: Pulmonary arterial hypertension
     Route: 058
     Dates: start: 20230922
  6. ESCITALOPRAM OXALATE [Concomitant]
     Active Substance: ESCITALOPRAM OXALATE
  7. BUMETANIDE [Concomitant]
     Active Substance: BUMETANIDE
  8. KETAMINE HYDROCHLORIDE [Concomitant]
     Active Substance: KETAMINE HYDROCHLORIDE
  9. LECITHIN [Concomitant]
     Active Substance: LECITHIN
  10. ATORVASTATIN CALCIUM [Concomitant]
     Active Substance: ATORVASTATIN CALCIUM
  11. ALLOPURINOL [Concomitant]
     Active Substance: ALLOPURINOL
  12. PREDNISONE [Concomitant]
     Active Substance: PREDNISONE
  13. Eye drops (tetryzoline hydrochloride) [Concomitant]
  14. BUPROPION HYDROCHLORIDE SR [Concomitant]
     Active Substance: BUPROPION HYDROCHLORIDE
  15. POTASSIUM CHLORIDE [Concomitant]
     Active Substance: POTASSIUM CHLORIDE
  16. OPSUMIT [Concomitant]
     Active Substance: MACITENTAN
  17. probiotic + acidophilus [Concomitant]
  18. CLONIDINE [Concomitant]
     Active Substance: CLONIDINE
  19. KETOPROFEN [Concomitant]
     Active Substance: KETOPROFEN
  20. REVATIO [Concomitant]
     Active Substance: SILDENAFIL CITRATE
  21. LEVOTHYROXINE SODIUM [Concomitant]
     Active Substance: LEVOTHYROXINE SODIUM
  22. MIDODRINE HYDROCHLORIDE [Concomitant]
     Active Substance: MIDODRINE HYDROCHLORIDE
  23. OXYGEN [Concomitant]
     Active Substance: OXYGEN
  24. LIDOCAINE HYDROCHLORIDE [Concomitant]
     Active Substance: LIDOCAINE HYDROCHLORIDE
  25. ACETAMINOPHEN [Concomitant]
     Active Substance: ACETAMINOPHEN
  26. AMITRIPTYLINE [Concomitant]
     Active Substance: AMITRIPTYLINE
  27. GABAPENTIN [Concomitant]
     Active Substance: GABAPENTIN
  28. POLOXAMER [Concomitant]
     Active Substance: POLOXAMER
  29. ASPIRIN [Concomitant]
     Active Substance: ASPIRIN
  30. d3-5000 [Concomitant]

REACTIONS (1)
  - Blood pressure decreased [Unknown]
